FAERS Safety Report 5539198-0 (Version None)
Quarter: 2007Q4

REPORT INFORMATION
  Report Type: 
  Country: None (occurrence: None)
  Receive Date: 20071208
  Receipt Date: 20070207
  Transmission Date: 20080405
  Serious: No
  Sender: FDA-Public Use
  Company Number: US-AMGEN-KDL208615

PATIENT
  Sex: Female

DRUGS (10)
  1. ENBREL [Suspect]
     Indication: RHEUMATOID ARTHRITIS
     Route: 058
     Dates: start: 20040416
  2. PLAQUENIL [Concomitant]
     Dates: start: 20020101
  3. METHOTREXATE [Concomitant]
     Dates: start: 20020101
  4. COZAAR [Concomitant]
  5. ALDACTONE [Concomitant]
     Dates: start: 20031229
  6. PEPCID [Concomitant]
  7. DARVOCET [Concomitant]
  8. FOLIC ACID [Concomitant]
     Dates: start: 20020101
  9. LEXAPRO [Concomitant]
     Dates: start: 20030812
  10. TRICOR [Concomitant]
     Dates: start: 20031203

REACTIONS (1)
  - BASAL CELL CARCINOMA [None]
